FAERS Safety Report 19607842 (Version 3)
Quarter: 2021Q3

REPORT INFORMATION
  Report Type: Report from Study
  Country: US (occurrence: US)
  Receive Date: 20210726
  Receipt Date: 20210830
  Transmission Date: 20211014
  Serious: Yes (Hospitalization, Other)
  Sender: FDA-Public Use
  Company Number: US-GILEAD-2021-0541407

PATIENT
  Age: 39 Year
  Sex: Male

DRUGS (3)
  1. AZTREONAM LYSINE [Suspect]
     Active Substance: AZTREONAM LYSINE
     Indication: CYSTIC FIBROSIS LUNG
  2. AZTREONAM LYSINE [Suspect]
     Active Substance: AZTREONAM LYSINE
     Indication: BRONCHIECTASIS
     Dosage: 75 MG, TID, FOR 28 DAYS ON THEN 28 DAYS OFF
     Route: 055
  3. TOBI [Concomitant]
     Active Substance: TOBRAMYCIN

REACTIONS (2)
  - Cystic fibrosis [Unknown]
  - Illness [Unknown]

NARRATIVE: CASE EVENT DATE: 202106
